FAERS Safety Report 14766726 (Version 3)
Quarter: 2018Q3

REPORT INFORMATION
  Report Type: Spontaneous
  Country: CZ (occurrence: CZ)
  Receive Date: 20180417
  Receipt Date: 20180701
  Transmission Date: 20181010
  Serious: Yes (Death, Life-Threatening, Hospitalization, Disabling, Other)
  Sender: FDA-Public Use
  Company Number: CZ-BRISTOL-MYERS SQUIBB COMPANY-BMS-2018-034224

PATIENT
  Age: 68 Year
  Sex: Female

DRUGS (4)
  1. NIVOLUMAB [Suspect]
     Active Substance: NIVOLUMAB
     Indication: MALIGNANT MELANOMA
     Dosage: 3 MG/KG, UNK
     Route: 065
  2. NIVOLUMAB [Suspect]
     Active Substance: NIVOLUMAB
     Indication: PAPILLARY THYROID CANCER
     Route: 065
  3. NIVOLUMAB [Suspect]
     Active Substance: NIVOLUMAB
     Indication: PAPILLARY THYROID CANCER
     Route: 065
  4. NIVOLUMAB [Suspect]
     Active Substance: NIVOLUMAB
     Indication: MALIGNANT MELANOMA
     Route: 065

REACTIONS (13)
  - Hypotension [Unknown]
  - Encephalitis [Unknown]
  - Pulmonary embolism [Unknown]
  - Brain cancer metastatic [Unknown]
  - Loss of consciousness [Fatal]
  - Death [Fatal]
  - Cardiac arrest [Unknown]
  - Mydriasis [Unknown]
  - Bradycardia [Unknown]
  - Pneumonitis [Unknown]
  - Dyspnoea [Unknown]
  - Coma [Fatal]
  - Pain [Unknown]

NARRATIVE: CASE EVENT DATE: 20180406
